FAERS Safety Report 21076223 (Version 3)
Quarter: 2022Q4

REPORT INFORMATION
  Report Type: Spontaneous
  Country: JP (occurrence: JP)
  Receive Date: 20220713
  Receipt Date: 20221219
  Transmission Date: 20230112
  Serious: Yes (Hospitalization)
  Sender: FDA-Public Use
  Company Number: JP-SERVIER-S22007075

PATIENT
  Age: 82 Year
  Sex: Female

DRUGS (9)
  1. ONIVYDE [Suspect]
     Active Substance: IRINOTECAN HYDROCHLORIDE
     Indication: Pancreatic carcinoma
     Dosage: 86 MG/BODY
     Route: 042
     Dates: start: 20200828, end: 2020
  2. ONIVYDE [Suspect]
     Active Substance: IRINOTECAN HYDROCHLORIDE
     Dosage: 86 MG/BODY
     Route: 042
     Dates: start: 2020, end: 2020
  3. ONIVYDE [Suspect]
     Active Substance: IRINOTECAN HYDROCHLORIDE
     Dosage: 86 MG/BODY
     Route: 042
     Dates: end: 20210215
  4. LEVOLEUCOVORIN CALCIUM [Suspect]
     Active Substance: LEVOLEUCOVORIN CALCIUM
     Indication: Pancreatic carcinoma
     Dosage: 240 MG/BODY
     Route: 042
     Dates: start: 20200828, end: 2020
  5. LEVOLEUCOVORIN CALCIUM [Suspect]
     Active Substance: LEVOLEUCOVORIN CALCIUM
     Dosage: 240 MG/BODY
     Route: 042
     Dates: start: 2020, end: 2020
  6. LEVOLEUCOVORIN CALCIUM [Suspect]
     Active Substance: LEVOLEUCOVORIN CALCIUM
     Dosage: 240 MG/BODY
     Route: 042
     Dates: end: 20210215
  7. FLUOROURACIL [Concomitant]
     Active Substance: FLUOROURACIL
     Indication: Pancreatic carcinoma
     Dosage: 2900 MG/BODY
     Route: 042
     Dates: start: 20200828, end: 2020
  8. FLUOROURACIL [Concomitant]
     Active Substance: FLUOROURACIL
     Dosage: 2900 MG/BODY
     Route: 042
     Dates: start: 2020, end: 2020
  9. FLUOROURACIL [Concomitant]
     Active Substance: FLUOROURACIL
     Dosage: 2900 MG/BODY
     Route: 042
     Dates: end: 20210215

REACTIONS (3)
  - Herpes zoster [Recovered/Resolved]
  - Neutrophil count decreased [Recovered/Resolved]
  - Product use issue [Recovered/Resolved]

NARRATIVE: CASE EVENT DATE: 20200828
